FAERS Safety Report 10060859 (Version 2)
Quarter: 2014Q2

REPORT INFORMATION
  Report Type: Report from Study
  Country: US (occurrence: US)
  Receive Date: 20140404
  Receipt Date: 20140404
  Transmission Date: 20141212
  Serious: Yes (Hospitalization)
  Sender: FDA-Public Use
  Company Number: US-ACTELION-A-US2014-95811

PATIENT
  Age: 85 Year
  Sex: Female

DRUGS (2)
  1. MACITENTAN [Suspect]
     Indication: PULMONARY ARTERIAL HYPERTENSION
     Dosage: 10 MG, UNK
     Route: 048
     Dates: start: 20140128, end: 20140205
  2. TYVASO [Concomitant]

REACTIONS (3)
  - Pulmonary veno-occlusive disease [Unknown]
  - Pulmonary oedema [Unknown]
  - Pleural effusion [Unknown]
